FAERS Safety Report 5099211-4 (Version None)
Quarter: 2006Q3

REPORT INFORMATION
  Report Type: 
  Country: None (occurrence: None)
  Receive Date: 20060731
  Receipt Date: 20051007
  Transmission Date: 20061208
  Serious: Yes (Hospitalization)
  Sender: FDA-Public Use
  Company Number: 218436

PATIENT
  Age: 30 Year
  Sex: Female

DRUGS (4)
  1. HERCEPTIN [Suspect]
     Indication: BREAST CANCER METASTATIC
     Dosage: 4 MG/KG
     Dates: start: 20051007
  2. TAXOL [Concomitant]
  3. OXYCONTIN [Concomitant]
  4. DILAUDID [Concomitant]

REACTIONS (1)
  - HYPERSENSITIVITY [None]
